FAERS Safety Report 9199160 (Version 2)
Quarter: 2013Q2

REPORT INFORMATION
  Report Type: Spontaneous
  Country: US (occurrence: None)
  Receive Date: 20130325
  Receipt Date: 20130409
  Transmission Date: 20140414
  Serious: No
  Sender: FDA-Public Use
  Company Number: 2013US-004573

PATIENT
  Age: 74 Year
  Sex: Female
  Weight: 99.5 kg

DRUGS (16)
  1. OMONTYS (PEGINESATIDE) SOLUTION FOR INJECTION [Suspect]
     Indication: NEPHROGENIC ANAEMIA
     Route: 042
     Dates: start: 20130208, end: 20130208
  2. EPOGEN (EPOETIN ALFA) [Concomitant]
  3. VENOFER [Concomitant]
  4. ZEMPLAR (PARICALCITOL) [Concomitant]
  5. HEPARIN (HEPARIN) [Concomitant]
  6. BENADRYL (DIPHYENHYDRAMINE HYDROCHLORIDE) [Concomitant]
  7. LOPERAMIDE (LOPERAMIDE) [Concomitant]
  8. AMLODIPINE (AMLODIPINE) [Concomitant]
  9. DIALYVITE (ASCORBIC ACID, BIOTIN, FOLIC ACID, MECOBALAMIN, NOCOTINIC ACID, PANTOTHENIC ACID, PYRIDOXINE HYDROCHLORIDE, RIBOFLAVIN, THIAMINE) [Concomitant]
  10. ASA (ACETYLSALICYLIC ACID) [Concomitant]
  11. INDERAL (PROPRANOLOL HYDROCHLORIDE) [Concomitant]
  12. FLUOXETINE (FLUOXETINE) [Concomitant]
  13. REQUIP (ROPINIROLE HYDROCHLORIDE) [Concomitant]
  14. LORAZEPAM (LORAZEPAM) [Concomitant]
  15. TRICOR (ADENOSINE) [Concomitant]
  16. LANTUS (INSULIN GLARGINE) [Concomitant]

REACTIONS (8)
  - Drug hypersensitivity [None]
  - Nausea [None]
  - Paraesthesia [None]
  - Flushing [None]
  - Lip swelling [None]
  - Malaise [None]
  - Erythema [None]
  - Urticaria [None]
